FAERS Safety Report 26094149 (Version 2)
Quarter: 2025Q4

REPORT INFORMATION
  Report Type: Spontaneous
  Country: US (occurrence: US)
  Receive Date: 20251126
  Receipt Date: 20251126
  Transmission Date: 20260118
  Serious: Yes (Other)
  Sender: IPSEN BIOPHARMACEUTICALS, INC.
  Company Number: US-IPSEN Group, Research and Development-2025-06800

PATIENT
  Age: 32 Year
  Sex: Male
  Weight: 85 kg

DRUGS (44)
  1. TAZVERIK [Suspect]
     Active Substance: TAZEMETOSTAT HYDROBROMIDE
     Indication: Malignant central nervous system neoplasm
     Dosage: 800 MG TWICE DAILY
     Route: 048
     Dates: start: 20220418
  2. TAZVERIK [Suspect]
     Active Substance: TAZEMETOSTAT HYDROBROMIDE
     Indication: Off label use
  3. ACETAMINOPHEN [Concomitant]
     Active Substance: ACETAMINOPHEN
  4. ACIDOPHILUS PROBIOTIC BLEND [Concomitant]
  5. ALBUTEROL SULFATE [Concomitant]
     Active Substance: ALBUTEROL SULFATE
  6. AMITRIPTYLINE [Concomitant]
     Active Substance: AMITRIPTYLINE
  7. AMOXICILLIN\CLAVULANATE POTASSIUM [Concomitant]
     Active Substance: AMOXICILLIN\CLAVULANATE POTASSIUM
  8. AZELASTINE HYDROCHLORIDE [Concomitant]
     Active Substance: AZELASTINE HYDROCHLORIDE
     Route: 045
  9. BACLOFEN [Concomitant]
     Active Substance: BACLOFEN
  10. CIMETIDINE [Concomitant]
     Active Substance: CIMETIDINE
  11. CIPROFLOXACIN [Concomitant]
     Active Substance: CIPROFLOXACIN
  12. CLOTRIMAZOLE [Concomitant]
     Active Substance: CLOTRIMAZOLE
     Dosage: MOUTH/THROAT TROCHE
  13. CRANBERRY [Concomitant]
     Active Substance: CRANBERRY
  14. FLUTICASONE PROPIONATE [Concomitant]
     Active Substance: FLUTICASONE PROPIONATE
     Route: 045
  15. STOOL SOFTENER (DOCUSATE) [Concomitant]
     Active Substance: DOCUSATE
  16. VITAMIN C [Concomitant]
     Active Substance: ASCORBIC ACID
  17. DIPHENHYDRAMINE [Concomitant]
     Active Substance: DIPHENHYDRAMINE
  18. ENOXAPARIN SODIUM [Concomitant]
     Active Substance: ENOXAPARIN SODIUM
     Route: 058
  19. FAMOTIDINE [Concomitant]
     Active Substance: FAMOTIDINE
  20. FLUOXETINE [Concomitant]
     Active Substance: FLUOXETINE HYDROCHLORIDE
  21. GLYCOPYRROLATE [Concomitant]
     Active Substance: GLYCOPYRROLATE
  22. LORATADINE [Concomitant]
     Active Substance: LORATADINE
  23. ACETAMINOPHEN\HYDROCODONE [Concomitant]
     Active Substance: ACETAMINOPHEN\HYDROCODONE
  24. ALBUTEROL\IPRATROPIUM [Concomitant]
     Active Substance: ALBUTEROL\IPRATROPIUM
  25. KEPPRA [Concomitant]
     Active Substance: LEVETIRACETAM
  26. KLONOPIN [Concomitant]
     Active Substance: CLONAZEPAM
  27. LEVOFLOXACIN [Concomitant]
     Active Substance: LEVOFLOXACIN
  28. METOCLOPRAMIDE [Concomitant]
     Active Substance: METOCLOPRAMIDE
  29. MUCINEX DM [Concomitant]
     Active Substance: DEXTROMETHORPHAN HYDROBROMIDE\GUAIFENESIN
  30. MULTISOURCE CAL-MAG/D [Concomitant]
     Dosage: MULTISOURCE?MAG/D
  31. NITROFURANTOIN [Concomitant]
     Active Substance: NITROFURANTOIN
  32. NYSTATIN [Concomitant]
     Active Substance: NYSTATIN
     Dosage: MOUTH/THROAT SUSPENSION
  33. ONDANSETRON [Concomitant]
     Active Substance: ONDANSETRON
  34. VIMPAT [Concomitant]
     Active Substance: LACOSAMIDE
  35. ZINC [Concomitant]
     Active Substance: ZINC
  36. MULLEIN [Concomitant]
  37. AZITHROMYCIN [Concomitant]
     Active Substance: AZITHROMYCIN
  38. NORCO [Concomitant]
     Active Substance: ACETAMINOPHEN\HYDROCODONE BITARTRATE
  39. CALCIUM [Concomitant]
     Active Substance: CALCIUM
  40. TYLENOL [Concomitant]
     Active Substance: ACETAMINOPHEN
  41. BENADRYL [Concomitant]
     Active Substance: DIPHENHYDRAMINE HYDROCHLORIDE
  42. METOCLOPRAMIDE [Concomitant]
     Active Substance: METOCLOPRAMIDE
  43. VITAMIN D NOS [Concomitant]
     Active Substance: CHOLECALCIFEROL\ERGOCALCIFEROL
  44. ZOFRAN [Concomitant]
     Active Substance: ONDANSETRON HYDROCHLORIDE

REACTIONS (5)
  - Nephrolithiasis [Recovering/Resolving]
  - Pharyngitis bacterial [Recovering/Resolving]
  - Off label use [Unknown]
  - Product dose omission issue [Unknown]
  - Back pain [Recovering/Resolving]

NARRATIVE: CASE EVENT DATE: 20220418
